FAERS Safety Report 4708676-6 (Version None)
Quarter: 2005Q3

REPORT INFORMATION
  Report Type: 
  Country: None (occurrence: None)
  Receive Date: 20050706
  Receipt Date: 20050620
  Transmission Date: 20060218
  Serious: Yes (Hospitalization, Other)
  Sender: FDA-Public Use
  Company Number: A-US2005-09984

PATIENT
  Age: 46 Year
  Sex: Female
  Weight: 83 kg

DRUGS (10)
  1. TRACLEER [Suspect]
     Indication: PULMONARY HYPERTENSION
     Dosage: 62.5 MG BID ORAL
     Route: 048
     Dates: start: 20040818, end: 20040918
  2. COUMADIN [Suspect]
     Dosage: 6 MG OD
  3. VIAGRA [Concomitant]
  4. ENALAPRIL MALEATE [Concomitant]
  5. DIGOXIN [Concomitant]
  6. HUMIBID (GUIAFENESIN) [Concomitant]
  7. LASIX [Concomitant]
  8. POTASSIUM CHLORIDE [Concomitant]
  9. ZOCOR [Concomitant]
  10. AUGMENTIN (CLAVULANATE POTASSIUM, AMOXICILLIN TRIHYDRATE) [Concomitant]

REACTIONS (3)
  - HEPATIC CIRRHOSIS [None]
  - RECTAL HAEMORRHAGE [None]
  - VAGINAL HAEMORRHAGE [None]
